FAERS Safety Report 12257104 (Version 1)
Quarter: 2016Q2

REPORT INFORMATION
  Report Type: Spontaneous
  Country: US (occurrence: None)
  Receive Date: 20160411
  Receipt Date: 20160411
  Transmission Date: 20160815
  Serious: Yes (Hospitalization)
  Sender: FDA-Public Use
  Company Number: None

PATIENT
  Age: 36 Year
  Sex: Male
  Weight: 52.8 kg

DRUGS (13)
  1. ACYCLOVIR. [Concomitant]
     Active Substance: ACYCLOVIR
  2. PENICILLIN [Concomitant]
     Active Substance: PENICILLIN
  3. METOPROLOL. [Concomitant]
     Active Substance: METOPROLOL
  4. CALCIUM CARBONATE. [Concomitant]
     Active Substance: CALCIUM CARBONATE
  5. AZITHROMYCIN ANHYDROUS. [Suspect]
     Active Substance: AZITHROMYCIN ANHYDROUS
     Indication: BRONCHITIS
     Dosage: 500 MG PO ON DAY 1, THEN 250MG DAILY X4
     Route: 048
     Dates: start: 20160121, end: 20160124
  6. DAPSONE. [Concomitant]
     Active Substance: DAPSONE
  7. MAGNESIUM OXIDE. [Concomitant]
     Active Substance: MAGNESIUM OXIDE
  8. URSODIOL. [Concomitant]
     Active Substance: URSODIOL
  9. FOLIC ACID. [Concomitant]
     Active Substance: FOLIC ACID
  10. CHOLECALCIFEROL [Concomitant]
     Active Substance: CHOLECALCIFEROL
  11. OMEGA-3 ETHYL ESTER [Concomitant]
  12. CHOLINE MAGNESIUM TRISALICYLATE. [Concomitant]
     Active Substance: CHOLINE MAGNESIUM TRISALICYLATE
  13. NYSTATIN. [Concomitant]
     Active Substance: NYSTATIN

REACTIONS (8)
  - Pruritus [None]
  - Chills [None]
  - Drug hypersensitivity [None]
  - Urticaria [None]
  - Dry throat [None]
  - Pneumonia [None]
  - Dyspnoea [None]
  - Feeling hot [None]

NARRATIVE: CASE EVENT DATE: 20160124
